FAERS Safety Report 9770773 (Version 1)
Quarter: 2013Q4

REPORT INFORMATION
  Report Type: Spontaneous
  Country: US (occurrence: US)
  Receive Date: 20131218
  Receipt Date: 20131218
  Transmission Date: 20140711
  Serious: No
  Sender: FDA-Public Use
  Company Number: US-PFIZER INC-2013359935

PATIENT
  Sex: Male

DRUGS (2)
  1. RAPAMUNE [Suspect]
     Dosage: UNK
  2. PROGRAF [Suspect]
     Dosage: UNK

REACTIONS (1)
  - BK virus infection [Unknown]
